FAERS Safety Report 8917806 (Version 3)
Quarter: 2013Q1

REPORT INFORMATION
  Report Type: Spontaneous
  Country: US (occurrence: US)
  Receive Date: 20121120
  Receipt Date: 20130328
  Transmission Date: 20140127
  Serious: Yes (Other)
  Sender: FDA-Public Use
  Company Number: US-ASTRAZENECA-2010SE30388

PATIENT
  Age: 69 Year
  Sex: Female

DRUGS (1)
  1. NEXIUM [Suspect]
     Route: 048

REACTIONS (7)
  - Renal disorder [Unknown]
  - Myocardial infarction [Unknown]
  - Choking [Unknown]
  - Oesophageal food impaction [Unknown]
  - Cardiac disorder [Unknown]
  - Hypoproteinaemia [Unknown]
  - Abdominal discomfort [Unknown]
